FAERS Safety Report 8927397 (Version 3)
Quarter: 2013Q4

REPORT INFORMATION
  Report Type: Report from Study
  Country: JP (occurrence: JP)
  Receive Date: 20121127
  Receipt Date: 20131105
  Transmission Date: 20140711
  Serious: Yes (Hospitalization)
  Sender: FDA-Public Use
  Company Number: JP-VERTEX PHARMACEUTICAL INC.-2012-025061

PATIENT
  Age: 59 Year
  Sex: Male

DRUGS (8)
  1. VX-950 (TELAPREVIR) [Suspect]
     Indication: CHRONIC HEPATITIS C
     Dosage: 2250 MG, QD
     Route: 048
     Dates: start: 20120817, end: 20121005
  2. RIBAVIRIN [Suspect]
     Indication: CHRONIC HEPATITIS C
     Dosage: 800 MG, QD
     Route: 048
     Dates: start: 20120817, end: 20120918
  3. RIBAVIRIN [Suspect]
     Dosage: 400 MG, QD
     Route: 048
     Dates: start: 20120919, end: 20120928
  4. RIBAVIRIN [Suspect]
     Dosage: 400 MG, QOD
     Route: 048
     Dates: start: 20120929, end: 20121005
  5. PEGINTERFERON ALFA-2B [Suspect]
     Indication: CHRONIC HEPATITIS C
     Dosage: 1.5 ?G/KG, UNK
     Route: 058
     Dates: start: 20120817, end: 20120929
  6. PEGINTERFERON ALFA-2B [Suspect]
     Dosage: 80 ?G, UNK
     Route: 058
     Dates: start: 20120817, end: 20120929
  7. PEGINTERFERON ALFA-2B [Suspect]
     Dosage: 80 ?G, UNK
     Route: 058
     Dates: start: 20121222
  8. URSO [Concomitant]
     Dosage: 600 MG, QD
     Route: 048
     Dates: end: 20121005

REACTIONS (2)
  - Pneumonia cytomegaloviral [Recovered/Resolved]
  - Bronchitis viral [Recovered/Resolved]
